FAERS Safety Report 17481135 (Version 1)
Quarter: 2020Q1

REPORT INFORMATION
  Report Type: Spontaneous
  Country: US (occurrence: US)
  Receive Date: 20200302
  Receipt Date: 20200302
  Transmission Date: 20200409
  Serious: Yes (Hospitalization, Other)
  Sender: FDA-Public Use
  Company Number: US-DRREDDYS-USA/USA/20/0120302

PATIENT
  Age: 73 Year
  Sex: Male

DRUGS (5)
  1. MYCOPHENOLIC ACID. [Suspect]
     Active Substance: MYCOPHENOLIC ACID
     Indication: IMMUNOSUPPRESSION
     Route: 065
     Dates: start: 20170829
  2. TACROLIMUS. [Suspect]
     Active Substance: TACROLIMUS
     Indication: IMMUNOSUPPRESSION
     Route: 065
  3. PREDNISONE. [Suspect]
     Active Substance: PREDNISONE
     Indication: IMMUNOSUPPRESSION
     Route: 065
  4. EVEROLIMUS. [Suspect]
     Active Substance: EVEROLIMUS
     Indication: IMMUNOSUPPRESSION
     Dates: start: 20170627, end: 20170829
  5. EVEROLIMUS. [Suspect]
     Active Substance: EVEROLIMUS

REACTIONS (6)
  - Acute kidney injury [Unknown]
  - Generalised oedema [Unknown]
  - Hypertension [Unknown]
  - Platelet count decreased [Unknown]
  - Diabetic nephropathy [Unknown]
  - Leukopenia [Recovered/Resolved]
